FAERS Safety Report 5081293-7 (Version None)
Quarter: 2006Q3

REPORT INFORMATION
  Report Type: 
  Country: None (occurrence: None)
  Receive Date: 20060816
  Receipt Date: 20060807
  Transmission Date: 20061208
  Serious: Yes (Hospitalization)
  Sender: FDA-Public Use
  Company Number: ES-JNJFOC-20060802402

PATIENT
  Age: 28 Year
  Sex: Female
  Weight: 54 kg

DRUGS (3)
  1. RISPERDAL [Suspect]
     Route: 048
  2. RISPERDAL [Suspect]
     Indication: AFFECTIVE DISORDER
     Route: 048
  3. ATARAX [Concomitant]
     Indication: PRURITUS
     Route: 048

REACTIONS (2)
  - PRURITUS [None]
  - RASH MACULO-PAPULAR [None]
